FAERS Safety Report 23248355 (Version 3)
Quarter: 2024Q1

REPORT INFORMATION
  Report Type: Spontaneous
  Country: US (occurrence: US)
  Receive Date: 20231201
  Receipt Date: 20240123
  Transmission Date: 20240410
  Serious: No
  Sender: FDA-Public Use
  Company Number: US-ABBVIE-5519436

PATIENT

DRUGS (2)
  1. RESTASIS [Suspect]
     Active Substance: CYCLOSPORINE
     Indication: Product used for unknown indication
     Route: 047
  2. RESTASIS [Suspect]
     Active Substance: CYCLOSPORINE
     Dosage: 0.05% 60 X 0.4 ML
     Route: 047

REACTIONS (1)
  - No adverse event [Unknown]
